FAERS Safety Report 9364804 (Version 1)
Quarter: 2013Q2

REPORT INFORMATION
  Report Type: Spontaneous
  Country: FR (occurrence: FR)
  Receive Date: 20130624
  Receipt Date: 20130624
  Transmission Date: 20140414
  Serious: Yes (Death, Hospitalization)
  Sender: FDA-Public Use
  Company Number: FR-UCBSA-089004

PATIENT
  Age: 47 Year
  Sex: Male

DRUGS (12)
  1. KEPPRA [Suspect]
     Indication: CONVULSION
     Dosage: UNKNOWN DOSE
     Dates: start: 20130321, end: 201304
  2. DI-HYDAN [Suspect]
     Indication: CONVULSION
     Dosage: 100 MG
     Dates: start: 20130318, end: 20130412
  3. ROCEPHINE [Suspect]
     Indication: INFECTION
     Dosage: UNKNOWN DOSE
     Dates: start: 20130402, end: 20130407
  4. ROCEPHINE [Suspect]
     Indication: FEBRILE INFECTION
     Dosage: UNKNOWN DOSE
     Dates: start: 20130402, end: 20130407
  5. AMOXICILLIN [Suspect]
     Indication: BLOOD CULTURE POSITIVE
     Dosage: UNKNOWN DOSE
     Dates: start: 20130406, end: 20130411
  6. AMOXICILLIN [Suspect]
     Indication: BLOOD CULTURE POSITIVE
  7. SPECIAFOLDINE [Concomitant]
     Dosage: 1 UNIT DAILY
  8. DUPHALAC [Concomitant]
     Dosage: 2 UNITS DAILY
  9. VITAMIN B1B6 [Concomitant]
     Dosage: UNKNOWN DOSE
  10. ALDACTONE [Concomitant]
     Dosage: 50 MG
  11. AVLOCARDYL [Concomitant]
     Dosage: 40 MG
  12. PRODILANTIN [Concomitant]
     Indication: STATUS EPILEPTICUS
     Dosage: UNKNOWN DOSE
     Dates: start: 20130317, end: 20130318

REACTIONS (6)
  - Rash maculo-papular [Fatal]
  - Face oedema [Fatal]
  - Drug reaction with eosinophilia and systemic symptoms [Fatal]
  - Stevens-Johnson syndrome [Fatal]
  - Eosinophilia [Fatal]
  - Febrile infection [Unknown]
